FAERS Safety Report 4592242-X (Version None)
Quarter: 2005Q1

REPORT INFORMATION
  Report Type: 
  Country: None (occurrence: None)
  Receive Date: 20050228
  Receipt Date: 20041102
  Transmission Date: 20050727
  Serious: No
  Sender: FDA-Public Use
  Company Number: US-BRISTOL-MYERS SQUIBB COMPANY-12754230

PATIENT
  Age: 13 Year
  Sex: Male
  Weight: 115 kg

DRUGS (3)
  1. ABILIFY [Suspect]
     Indication: BIPOLAR DISORDER
     Dosage: INITIATED AT 5 MG/DAY WITH VARYING DOSES UP TO 15 MG/DAY AND DOWN TO 5 MG/DAY.
     Route: 048
     Dates: start: 20040729
  2. ABILIFY [Suspect]
     Indication: ANXIETY DISORDER
     Dosage: INITIATED AT 5 MG/DAY WITH VARYING DOSES UP TO 15 MG/DAY AND DOWN TO 5 MG/DAY.
     Route: 048
     Dates: start: 20040729
  3. ABILIFY [Suspect]
     Indication: ATTENTION DEFICIT/HYPERACTIVITY DISORDER
     Dosage: INITIATED AT 5 MG/DAY WITH VARYING DOSES UP TO 15 MG/DAY AND DOWN TO 5 MG/DAY.
     Route: 048
     Dates: start: 20040729

REACTIONS (8)
  - ABDOMINAL PAIN UPPER [None]
  - AGITATION [None]
  - BACK PAIN [None]
  - CYSTITIS [None]
  - DYSARTHRIA [None]
  - GASTROINTESTINAL PAIN [None]
  - PSYCHOTIC DISORDER [None]
  - VIRAL INFECTION [None]
